FAERS Safety Report 5737858-X (Version None)
Quarter: 2008Q2

REPORT INFORMATION
  Report Type: 
  Country: None (occurrence: None)
  Receive Date: 20080512
  Receipt Date: 20080512
  Transmission Date: 20081010
  Serious: No
  Sender: FDA-Public Use
  Company Number: None

PATIENT
  Age: 41 Year
  Sex: Female
  Weight: 75.7 kg

DRUGS (4)
  1. VANCOMYCIN [Suspect]
     Indication: ANTIBIOTIC THERAPY
     Dosage: 1 GRAM Q 12 HRS IV
     Route: 042
     Dates: start: 20080320
  2. VANCOMYCIN [Suspect]
     Indication: FUNGAL INFECTION
     Dosage: 1 GRAM Q 12 HRS IV
     Route: 042
     Dates: start: 20080320
  3. VORICONAZOLE [Suspect]
     Indication: ANTIBIOTIC THERAPY
     Dosage: 200 MG Q 12 HRS IV
     Route: 042
     Dates: start: 20080323
  4. VORICONAZOLE [Suspect]
     Indication: FUNGAL INFECTION
     Dosage: 200 MG Q 12 HRS IV
     Route: 042
     Dates: start: 20080323

REACTIONS (1)
  - PHARMACEUTICAL PRODUCT COMPLAINT [None]
